FAERS Safety Report 7889020-2 (Version None)
Quarter: 2011Q4

REPORT INFORMATION
  Report Type: 
  Country: None (occurrence: None)
  Receive Date: 20111103
  Receipt Date: 20111020
  Transmission Date: 20120403
  Serious: Yes (Hospitalization, Other)
  Sender: FDA-Public Use
  Company Number: SK-ROCHE-1008377

PATIENT
  Sex: Male
  Weight: 108 kg

DRUGS (2)
  1. ALTEPLASE [Suspect]
     Indication: THROMBOSIS
     Route: 042
     Dates: start: 20110720, end: 20110720
  2. ALTEPLASE [Suspect]
     Indication: PERIPHERAL ARTERIAL OCCLUSIVE DISEASE
     Route: 013
     Dates: start: 20110720, end: 20110720

REACTIONS (1)
  - ISCHAEMIA [None]
